FAERS Safety Report 9716940 (Version 2)
Quarter: 2015Q3

REPORT INFORMATION
  Report Type: Spontaneous
  Country: US (occurrence: US)
  Receive Date: 20131127
  Receipt Date: 20150803
  Transmission Date: 20151125
  Serious: No
  Sender: FDA-Public Use
  Company Number: US-GILEAD-2009-0019980

PATIENT
  Age: 46 Year
  Sex: Female
  Weight: 117.93 kg

DRUGS (10)
  1. MOTRIN [Concomitant]
     Active Substance: IBUPROFEN
  2. NEURONTIN [Concomitant]
     Active Substance: GABAPENTIN
  3. CLARITIN [Concomitant]
     Active Substance: LORATADINE
  4. PARACETAMOL/TRAMADOL HYDROCHLORIDE [Concomitant]
  5. IMITREX [Concomitant]
     Active Substance: SUMATRIPTAN\SUMATRIPTAN SUCCINATE
  6. LASIX [Concomitant]
     Active Substance: FUROSEMIDE
  7. TESSALON [Concomitant]
     Active Substance: BENZONATATE
  8. LETAIRIS [Suspect]
     Active Substance: AMBRISENTAN
     Indication: PULMONARY ARTERIAL HYPERTENSION
     Route: 048
     Dates: start: 20081110
  9. TOPROL XL [Concomitant]
     Active Substance: METOPROLOL SUCCINATE
  10. KLOR-CON [Concomitant]
     Active Substance: POTASSIUM CHLORIDE

REACTIONS (2)
  - Nasal congestion [Unknown]
  - Upper respiratory tract congestion [Unknown]
